FAERS Safety Report 8162086-0 (Version None)
Quarter: 2012Q1

REPORT INFORMATION
  Report Type: 
  Country: None (occurrence: None)
  Receive Date: 20120224
  Receipt Date: 20110817
  Transmission Date: 20120608
  Serious: No
  Sender: FDA-Public Use
  Company Number: US-BRISTOL-MYERS SQUIBB COMPANY-15979396

PATIENT
  Sex: Female

DRUGS (1)
  1. GLUCOPHAGE [Suspect]
     Dosage: FREQ: DOSE INCREASED 2 TABS IN MORNING + 1 IN EVENING

REACTIONS (1)
  - DRUG INEFFECTIVE [None]
